FAERS Safety Report 24089591 (Version 1)
Quarter: 2024Q3

REPORT INFORMATION
  Report Type: Spontaneous
  Country: GB (occurrence: GB)
  Receive Date: 20240715
  Receipt Date: 20240715
  Transmission Date: 20241016
  Serious: Yes (Death)
  Sender: MYLAN
  Company Number: GB-MHRA-TPP61840023C11097060YC1719228836778

PATIENT
  Age: 86 Year
  Sex: Female

DRUGS (3)
  1. SIMVASTATIN [Suspect]
     Active Substance: SIMVASTATIN
     Indication: Ill-defined disorder
     Dosage: UNK
     Route: 048
     Dates: start: 20240617
  2. MORPHINE SULFATE [Concomitant]
     Active Substance: MORPHINE SULFATE
     Indication: Ill-defined disorder
     Dosage: 2.5 MILLIGRAM (2.5MG UP TO 4-6 HOURLY)
     Route: 065
     Dates: start: 20240329
  3. LACTULOSE [Concomitant]
     Active Substance: LACTULOSE
     Indication: Ill-defined disorder
     Dosage: 15 MILLILITER, BID (PRN 15ML BD)
     Route: 065
     Dates: start: 20240426

REACTIONS (2)
  - Death [Fatal]
  - Rash [Fatal]

NARRATIVE: CASE EVENT DATE: 20240618
